FAERS Safety Report 6765313-7 (Version None)
Quarter: 2010Q2

REPORT INFORMATION
  Report Type: 
  Country: None (occurrence: None)
  Receive Date: 20100611
  Receipt Date: 20100526
  Transmission Date: 20101027
  Serious: Yes (Life-Threatening, Other)
  Sender: FDA-Public Use
  Company Number: AT-BAYER-201026581GPV

PATIENT
  Age: 56 Year
  Sex: Male

DRUGS (10)
  1. MABCAMPATH [Suspect]
     Indication: T-CELL PROLYMPHOCYTIC LEUKAEMIA
     Dosage: 10 MG/ML CONCENTRATE FOR INFUSION SOLUTION
     Route: 058
     Dates: start: 20091211
  2. NEOFLUBIN [Suspect]
     Indication: T-CELL PROLYMPHOCYTIC LEUKAEMIA
     Dosage: 25 MG/ML CONCTRATE FOR INJECTION OR INFUSION SOLUTION
     Dates: start: 20091113
  3. NEOFLUBIN [Suspect]
     Dosage: 25 MG/ML CONCTRATE FOR INJECTION OR INFUSION SOLUTION
     Dates: start: 20091211
  4. NEOFLUBIN [Suspect]
     Dosage: 25 MG/ML CONCTRATE FOR INJECTION OR INFUSION SOLUTION
     Dates: start: 20100108
  5. NEOFLUBIN [Suspect]
     Dosage: 25 MG/ML CONCTRATE FOR INJECTION OR INFUSION SOLUTION
     Dates: start: 20091015
  6. EBEXANTRON [Suspect]
     Indication: T-CELL PROLYMPHOCYTIC LEUKAEMIA
     Dosage: 2 MG/ML CONCTRATE FOR INFUSION SOLUTION
     Dates: start: 20091015
  7. ENDOXAN ^BAXTER^ [Suspect]
     Indication: T-CELL PROLYMPHOCYTIC LEUKAEMIA
     Dosage: UNIT DOSE: 200 MG
     Dates: start: 20091015
  8. ENDOXAN ^BAXTER^ [Suspect]
     Dosage: UNIT DOSE: 200 MG
     Dates: start: 20100108
  9. ENDOXAN ^BAXTER^ [Suspect]
     Dosage: UNIT DOSE: 200 MG
     Dates: start: 20091211
  10. ENDOXAN ^BAXTER^ [Suspect]
     Dosage: UNIT DOSE: 200 MG
     Dates: start: 20091113

REACTIONS (2)
  - CAMPYLOBACTER INFECTION [None]
  - GUILLAIN-BARRE SYNDROME [None]
